FAERS Safety Report 6026679-9 (Version None)
Quarter: 2008Q4

REPORT INFORMATION
  Report Type: 
  Country: None (occurrence: None)
  Receive Date: 20081231
  Receipt Date: 20081218
  Transmission Date: 20090506
  Serious: Yes (Hospitalization)
  Sender: FDA-Public Use
  Company Number: KV200801269

PATIENT
  Age: 84 Year
  Sex: Female
  Weight: 68 kg

DRUGS (5)
  1. ISOSORBIDE MONONITRATE [Suspect]
     Indication: HYPERTENSION
     Dosage: 60 MG, 1/2 TAB QD, ORAL
     Route: 048
     Dates: start: 20080301, end: 20080801
  2. NORVASC /00972401/ (AMLODIPINE) [Concomitant]
  3. HYDROXYUREA [Concomitant]
  4. ASPIRIN [Concomitant]
  5. PRILOSEC /00661201/ (OMEPRAZOLE) [Concomitant]

REACTIONS (6)
  - ANOREXIA [None]
  - BLOOD PRESSURE DECREASED [None]
  - FACIAL PALSY [None]
  - FATIGUE [None]
  - PRODUCT QUALITY ISSUE [None]
  - WEIGHT DECREASED [None]
